FAERS Safety Report 8817120 (Version 1)
Quarter: 2012Q4

REPORT INFORMATION
  Report Type: Spontaneous
  Country: US (occurrence: None)
  Receive Date: 20121003
  Receipt Date: 20121003
  Transmission Date: 20130627
  Serious: Yes (Life-Threatening, Hospitalization)
  Sender: FDA-Public Use
  Company Number: None

PATIENT
  Age: 46 Year
  Sex: Male
  Weight: 111.13 kg

DRUGS (1)
  1. LAMICTAL [Suspect]
     Indication: BIPOLAR DISORDER
     Route: 048
     Dates: start: 20050801, end: 20050901

REACTIONS (8)
  - Headache [None]
  - Neck pain [None]
  - Pyrexia [None]
  - Nausea [None]
  - Vomiting [None]
  - Confusional state [None]
  - Meningitis viral [None]
  - Mental impairment [None]
